FAERS Safety Report 23605352 (Version 1)
Quarter: 2024Q1

REPORT INFORMATION
  Report Type: Spontaneous
  Country: US (occurrence: US)
  Receive Date: 20240307
  Receipt Date: 20240307
  Transmission Date: 20240410
  Serious: No
  Sender: FDA-Public Use
  Company Number: US-GLENMARK PHARMACEUTICALS-2023GMK086333

PATIENT

DRUGS (1)
  1. FLUCONAZOLE [Suspect]
     Active Substance: FLUCONAZOLE
     Indication: Vulvovaginal candidiasis
     Dosage: 150 MILLIGRAM, QD (TAKE ONE TABLET ON FIRST DAY, TAKE ANOTHER TABLET AFTER THREE DAYS)
     Route: 048

REACTIONS (2)
  - Product prescribing issue [Unknown]
  - Therapeutic product effect incomplete [Unknown]
